FAERS Safety Report 6203543-3 (Version None)
Quarter: 2009Q2

REPORT INFORMATION
  Report Type: 
  Country: None (occurrence: None)
  Receive Date: 20090527
  Receipt Date: 20090522
  Transmission Date: 20091009
  Serious: Yes (Hospitalization)
  Sender: FDA-Public Use
  Company Number: AU-BRISTOL-MYERS SQUIBB COMPANY-14593073

PATIENT
  Age: 67 Year
  Sex: Female
  Weight: 69 kg

DRUGS (22)
  1. BLINDED: BRIVANIB ALANINATE [Suspect]
     Indication: COLORECTAL CANCER METASTATIC
     Dosage: INTERRUPTED ON 08-APR-2009 AND RESTARTED ON 08APR09,
     Route: 048
     Dates: start: 20090109
  2. CETUXIMAB [Suspect]
     Indication: COLORECTAL CANCER METASTATIC
     Dosage: INTERRUPTED ON 08APR09 AND RESTARTED ON 15APR09
     Route: 042
     Dates: start: 20090408
  3. BLINDED: PLACEBO [Suspect]
     Indication: COLORECTAL CANCER METASTATIC
     Dosage: INTERRUPTED ON 08-APR-2009
     Route: 048
     Dates: start: 20090109
  4. LORATADINE [Concomitant]
     Dosage: INTERRUPTED ON 08-APR-2009
     Route: 048
     Dates: start: 20090415
  5. CARTIA XT [Concomitant]
     Indication: PAIN
     Dates: start: 20020101
  6. ATENOLOL [Concomitant]
     Indication: HYPERTENSION
     Dates: start: 19990101
  7. SIMVOR [Concomitant]
     Indication: HYPERCHOLESTEROLAEMIA
     Dates: start: 20000101
  8. PERINDOPRIL ERBUMINE [Concomitant]
     Indication: HYPERTENSION
     Dates: start: 20020101
  9. DIGOXIN [Concomitant]
     Indication: ARRHYTHMIA
     Dates: start: 19950101
  10. DEXAMETHASONE 4MG TAB [Concomitant]
     Indication: ABDOMINAL PAIN
     Dates: start: 20080101
  11. FUROSEMIDE [Concomitant]
     Indication: OEDEMA
     Dates: start: 20081001
  12. STEMETIL [Concomitant]
     Indication: NAUSEA
     Dates: start: 20060401
  13. ENDONE [Concomitant]
     Indication: PAIN
     Dates: start: 20060401
  14. COLOXYL [Concomitant]
     Indication: CONSTIPATION
     Dates: start: 20060101
  15. ACETAMINOPHEN [Concomitant]
     Indication: PAIN
     Dates: start: 19900101
  16. DURAGESIC-100 [Concomitant]
     Indication: PAIN
     Dates: start: 20080101
  17. GABAPENTIN [Concomitant]
     Indication: PAIN
     Dates: start: 20060101
  18. FOSAMAX [Concomitant]
     Indication: OSTEOPOROSIS
     Dates: start: 20090401
  19. LORAZEPAM [Concomitant]
     Indication: NAUSEA
     Dates: start: 20090202
  20. MAGMIN [Concomitant]
     Indication: BLOOD MAGNESIUM DECREASED
     Dates: start: 20090213, end: 20090213
  21. NULYTELY [Concomitant]
     Indication: CONSTIPATION
     Dates: start: 20000101
  22. BUSPAR [Concomitant]
     Indication: ABDOMINAL PAIN
     Dates: start: 20060401

REACTIONS (2)
  - INTESTINAL OBSTRUCTION [None]
  - INTESTINAL PERFORATION [None]
